FAERS Safety Report 26091274 (Version 1)
Quarter: 2025Q4

REPORT INFORMATION
  Report Type: Spontaneous
  Country: EU (occurrence: EU)
  Receive Date: 20251126
  Receipt Date: 20251126
  Transmission Date: 20260118
  Serious: Yes (Hospitalization, Congenital Anomaly, Other)
  Sender: AUROBINDO
  Company Number: EU-BAYER-2016-037669

PATIENT
  Age: 0 Year
  Sex: Female
  Weight: 1.35 kg

DRUGS (9)
  1. APIXABAN [Suspect]
     Active Substance: APIXABAN
     Indication: Product used for unknown indication
     Dosage: UNK
  2. SILDENAFIL [Suspect]
     Active Substance: SILDENAFIL
     Indication: Product used for unknown indication
     Dosage: 20 MILLIGRAM, ONCE A DAY
     Dates: start: 20150105, end: 20150323
  3. PREDNISOLONE [Suspect]
     Active Substance: PREDNISOLONE
     Indication: Product used for unknown indication
     Dosage: UNK
     Dates: start: 20150727, end: 20150907
  4. OPSUMIT [Suspect]
     Active Substance: MACITENTAN
     Indication: Exposure during pregnancy
     Dosage: 10 MILLIGRAM, ONCE A DAY
     Dates: start: 20141124, end: 20150323
  5. VENTAVIS [Suspect]
     Active Substance: ILOPROST
     Indication: Exposure during pregnancy
     Dosage: UNK
  6. AZATHIOPRINE [Suspect]
     Active Substance: AZATHIOPRINE
     Indication: Exposure during pregnancy
     Dosage: 50 UNK, ONCE A DAY
  7. TINZAPARIN [Suspect]
     Active Substance: TINZAPARIN
     Indication: Exposure during pregnancy
     Dosage: UNK
  8. HYDROXYCHLOROQUINE [Suspect]
     Active Substance: HYDROXYCHLOROQUINE
     Indication: Exposure during pregnancy
     Dosage: UNK
     Dates: start: 20150727, end: 20150907
  9. TREPROSTINIL [Suspect]
     Active Substance: TREPROSTINIL
     Indication: Exposure during pregnancy
     Dosage: UNK

REACTIONS (10)
  - Premature baby [Unknown]
  - Osteochondrodysplasia [Unknown]
  - Neonatal respiratory distress syndrome [Recovered/Resolved]
  - Hypotonia [Recovered/Resolved]
  - Bradycardia [Recovered/Resolved]
  - Cyanosis [Recovered/Resolved]
  - Foetal growth restriction [Unknown]
  - Congenital musculoskeletal disorder [Unknown]
  - Posture abnormal [Unknown]
  - Foetal exposure timing unspecified [Unknown]

NARRATIVE: CASE EVENT DATE: 20151010
